FAERS Safety Report 7537385-3 (Version None)
Quarter: 2011Q2

REPORT INFORMATION
  Report Type: 
  Country: None (occurrence: None)
  Receive Date: 20110609
  Receipt Date: 20110527
  Transmission Date: 20111010
  Serious: Yes (Other)
  Sender: FDA-Public Use
  Company Number: JP-CELGENEUS-087-21880-11053453

PATIENT
  Sex: Male

DRUGS (14)
  1. REVLIMID [Suspect]
     Dosage: 25 MILLIGRAM
     Route: 048
     Dates: start: 20110113, end: 20110203
  2. DEXAMETHASONE [Suspect]
     Dosage: 40 MILLIGRAM
     Route: 048
     Dates: start: 20110210, end: 20110301
  3. FAMOTIDINE [Concomitant]
     Indication: PROPHYLAXIS
     Dosage: 20 MILLIGRAM
     Route: 048
     Dates: start: 20101216, end: 20110329
  4. REVLIMID [Suspect]
     Indication: MULTIPLE MYELOMA
     Dosage: 25 MILLIGRAM
     Route: 048
     Dates: start: 20101216, end: 20110105
  5. DEXAMETHASONE [Suspect]
     Dosage: 40 MILLIGRAM
     Route: 048
     Dates: start: 20110310, end: 20110329
  6. DEXAMETHASONE [Concomitant]
     Dosage: 33 MILLIGRAM
     Route: 041
     Dates: start: 20110101, end: 20110104
  7. REVLIMID [Suspect]
     Dosage: 25 MILLIGRAM
     Route: 048
     Dates: start: 20110210, end: 20110302
  8. REVLIMID [Suspect]
     Dosage: 25 MILLIGRAM
     Route: 048
     Dates: start: 20110310, end: 20110330
  9. ASPIRIN [Concomitant]
     Indication: PROPHYLAXIS
     Dosage: 100 MILLIGRAM
     Route: 048
     Dates: start: 20101216, end: 20110329
  10. DEXAMETHASONE [Suspect]
     Indication: MULTIPLE MYELOMA
     Dosage: 40 MILLIGRAM
     Route: 048
     Dates: start: 20110113, end: 20110201
  11. DEXAMETHASONE [Concomitant]
     Dosage: 33 MILLIGRAM
     Route: 041
     Dates: start: 20101224, end: 20101227
  12. DEXAMETHASONE [Concomitant]
     Indication: MULTIPLE MYELOMA
     Dosage: 33 MILLIGRAM
     Route: 041
     Dates: start: 20101216, end: 20101219
  13. MAXIPIME [Concomitant]
     Indication: PROPHYLAXIS
     Dosage: 4 GRAM
     Route: 041
     Dates: start: 20110110, end: 20110113
  14. VOLTAREN [Concomitant]
     Dosage: 37.5 MILLIGRAM
     Route: 048
     Dates: start: 20101216, end: 20110329

REACTIONS (4)
  - CONSTIPATION [None]
  - THIRST [None]
  - OSTEONECROSIS OF JAW [None]
  - DIARRHOEA [None]
